FAERS Safety Report 9491431 (Version 2)
Quarter: 2013Q1

REPORT INFORMATION
  Report Type: Not Available
  Country: US (occurrence: US)
  Receive Date: 20120619
  Receipt Date: 20120619
  Transmission Date: 20140127
  Serious: Yes (Hospitalization)
  Sender: FDA-Public Use
  Company Number: US-LUNDBECK-DKLU1074756

PATIENT
  Age: 44 None
  Sex: Female
  Weight: 71.1 kg

DRUGS (14)
  1. CLOBAZAM [Suspect]
     Indication: LENNOX-GASTAUT SYNDROME
     Route: 048
     Dates: start: 20090528, end: 20090914
  2. CLOBAZAM [Suspect]
     Route: 048
     Dates: start: 20090915
  3. CLOBAZAM [Suspect]
     Route: 048
     Dates: start: 20090915
  4. CENTRUM MVI [Concomitant]
     Indication: NUTRITIONAL SUPPLEMENTATION
     Dosage: 1 TAB
     Route: 048
     Dates: start: 19981215
  5. TUMS [Concomitant]
     Indication: OSTEOPENIA
     Dosage: 2 TABS
     Route: 048
     Dates: start: 19981215
  6. MIACALCIN [Concomitant]
     Indication: OSTEOPENIA
     Dosage: 1 SPRAY
     Route: 050
     Dates: start: 19990722
  7. CHLORYLPHYL [Concomitant]
     Indication: FLATULENCE
     Route: 048
     Dates: start: 20101029
  8. GAS-X [Concomitant]
     Indication: FLATULENCE
     Dosage: 1 TAB
     Route: 048
     Dates: start: 20110201
  9. SYNTHROID [Concomitant]
     Indication: HYPOTHYROIDISM
     Route: 048
     Dates: start: 20110401
  10. TOPAMAX [Concomitant]
     Indication: CONVULSION
     Route: 048
     Dates: start: 2003
  11. TOPAMAX [Concomitant]
     Route: 048
     Dates: start: 2003
  12. TOPAMAX [Concomitant]
     Route: 048
     Dates: start: 2003
  13. DIAZEPAM [Concomitant]
     Indication: CONVULSION
     Route: 050
  14. DEPAKOTE [Concomitant]
     Indication: CONVULSION
     Route: 048

REACTIONS (1)
  - Pneumonia aspiration [Recovered/Resolved]
